FAERS Safety Report 8991833 (Version 1)
Quarter: 2012Q4

REPORT INFORMATION
  Report Type: 
  Country: US (occurrence: US)
  Receive Date: 20121231
  Receipt Date: 20121231
  Transmission Date: 20130627
  Serious: Yes (Other)
  Sender: FDA-Public Use
  Company Number: PHHY2012US121219

PATIENT
  Age: 58 Year
  Sex: Female

DRUGS (8)
  1. DOXORUBICIN [Suspect]
     Indication: BREAST CANCER
  2. DOCETAXEL [Suspect]
     Indication: BREAST CANCER
  3. TRASTUZUMAB [Concomitant]
     Indication: BREAST CANCER
  4. PROCHLORPERAZINE [Concomitant]
  5. LORAZEPAM [Concomitant]
  6. PRAVASTATIN [Concomitant]
  7. TRIAMTERENE AND HYDROCHLOROTHIAZID [Concomitant]
  8. HYDROCODONE W/ACETAMINOPHEN [Concomitant]

REACTIONS (6)
  - Cutaneous lupus erythematosus [Recovered/Resolved]
  - Rash [Recovered/Resolved]
  - Skin plaque [Recovered/Resolved]
  - Skin exfoliation [Recovered/Resolved]
  - Skin disorder [Recovered/Resolved]
  - Dermatitis [Recovered/Resolved]
